FAERS Safety Report 6648875-X (Version None)
Quarter: 2010Q1

REPORT INFORMATION
  Report Type: 
  Country: None (occurrence: None)
  Receive Date: 20100319
  Receipt Date: 20091218
  Transmission Date: 20100710
  Serious: Yes (Congenital Anomaly, Other)
  Sender: FDA-Public Use
  Company Number: AUR-APL-2010-00731

PATIENT
  Sex: Male
  Weight: 3.23 kg

DRUGS (8)
  1. ZIDOVUDINE [Suspect]
     Indication: HIV INFECTION
     Dosage: TRANSPLACENTAL
     Route: 064
     Dates: start: 20070521
  2. VIRACEPT [Suspect]
     Indication: HIV INFECTION
     Dosage: TRANSPLACENTAL
     Route: 064
     Dates: start: 20070512, end: 20070612
  3. EMTRICITABINE [Suspect]
     Indication: HIV INFECTION
     Dosage: TRANSPLACENTAL
     Route: 064
     Dates: start: 20070403, end: 20070521
  4. EFAVIRENZ [Suspect]
     Indication: HIV INFECTION
     Dosage: TRANSPLACENTAL
     Route: 064
     Dates: start: 20070403, end: 20070510
  5. TENOFOVIR [Suspect]
     Indication: HIV INFECTION
     Dosage: TRANSPLACENTAL
     Route: 064
     Dates: start: 20070403, end: 20070521
  6. RITONAVIR [Suspect]
     Indication: HIV INFECTION
     Dosage: TRANSPLACENTAL
     Route: 064
     Dates: start: 20070510
  7. LOPINAVIR [Suspect]
     Indication: HIV INFECTION
     Dosage: TRANSPLACENTAL
     Route: 064
     Dates: start: 20070510
  8. LAMIVUDINE [Suspect]
     Indication: HIV INFECTION
     Dosage: TRANSPLACENTAL
     Route: 064
     Dates: start: 20070512

REACTIONS (2)
  - HYDROCELE [None]
  - MATERNAL DRUGS AFFECTING FOETUS [None]
